FAERS Safety Report 22227894 (Version 2)
Quarter: 2025Q2

REPORT INFORMATION
  Report Type: Report from Study
  Country: ES (occurrence: ES)
  Receive Date: 20230419
  Receipt Date: 20250505
  Transmission Date: 20250717
  Serious: Yes (Life-Threatening, Hospitalization, Other)
  Sender: AUROBINDO
  Company Number: ES-002147023-NVSC2023ES079006

PATIENT
  Age: 28 Year
  Sex: Male

DRUGS (9)
  1. DIAZEPAM [Suspect]
     Active Substance: DIAZEPAM
     Indication: Product used for unknown indication
     Route: 065
  2. ACETAMINOPHEN [Suspect]
     Active Substance: ACETAMINOPHEN
     Indication: Product used for unknown indication
     Route: 065
  3. COCAINE [Suspect]
     Active Substance: COCAINE
     Indication: Product used for unknown indication
     Route: 065
  4. KETAMINE [Suspect]
     Active Substance: KETAMINE
     Indication: Product used for unknown indication
     Route: 065
  5. QUININE [Suspect]
     Active Substance: QUININE
     Indication: Product used for unknown indication
     Route: 065
  6. MIDOMAFETAMINE [Suspect]
     Active Substance: MIDOMAFETAMINE
     Indication: Product used for unknown indication
     Route: 065
  7. PHENYTOIN [Concomitant]
     Active Substance: PHENYTOIN
     Indication: Product used for unknown indication
     Route: 065
  8. FENTANYL [Concomitant]
     Active Substance: FENTANYL
     Indication: Product used for unknown indication
     Route: 065
  9. PROPOFOL [Concomitant]
     Active Substance: PROPOFOL
     Indication: Product used for unknown indication
     Route: 065

REACTIONS (16)
  - Multiple organ dysfunction syndrome [Unknown]
  - Seizure [Unknown]
  - Depressed level of consciousness [Unknown]
  - Rhabdomyolysis [Unknown]
  - Hypoxia [Unknown]
  - Cardiac arrest [Unknown]
  - Biliary ischaemia [Unknown]
  - Drug abuse [Unknown]
  - Hyperthermia [Unknown]
  - Hypotension [Unknown]
  - Mydriasis [Unknown]
  - Hypertonia [Unknown]
  - Memory impairment [Unknown]
  - Disorientation [Unknown]
  - Hepatic function abnormal [Unknown]
  - Liver function test increased [Unknown]
